FAERS Safety Report 9619576 (Version 1)
Quarter: 2013Q4

REPORT INFORMATION
  Report Type: Spontaneous
  Country: FI (occurrence: FI)
  Receive Date: 20131014
  Receipt Date: 20131014
  Transmission Date: 20140711
  Serious: Yes (Other)
  Sender: FDA-Public Use
  Company Number: FI-GLAXOSMITHKLINE-A1035737A

PATIENT
  Sex: Male

DRUGS (1)
  1. NICORETTE [Suspect]
     Indication: SMOKING CESSATION THERAPY
     Route: 002

REACTIONS (12)
  - Panic disorder [Unknown]
  - Anxiety [Unknown]
  - Product packaging issue [Unknown]
  - Feeling abnormal [Unknown]
  - Asthenia [Unknown]
  - Restlessness [Unknown]
  - Abnormal behaviour [Recovering/Resolving]
  - Fatigue [Unknown]
  - Fear [Unknown]
  - Dyspnoea [Unknown]
  - Heart rate increased [Unknown]
  - Dizziness [Unknown]
